FAERS Safety Report 5245360-7 (Version None)
Quarter: 2007Q1

REPORT INFORMATION
  Report Type: 
  Country: None (occurrence: None)
  Receive Date: 20070223
  Receipt Date: 20070215
  Transmission Date: 20070707
  Serious: Yes (Hospitalization, Other)
  Sender: FDA-Public Use
  Company Number: GBWYE691015FEB07

PATIENT
  Age: 66 Year
  Sex: Male
  Weight: 91 kg

DRUGS (6)
  1. IBUPROFEN [Suspect]
     Indication: ARTHRITIS
     Dosage: 400MG, 3 IN 1 DAY
     Route: 048
     Dates: start: 20050628, end: 20061004
  2. WARFARIN [Suspect]
     Dosage: UNKNOWN
     Dates: start: 20060901, end: 20061004
  3. PARACETAMOL [Concomitant]
     Route: 048
     Dates: end: 20061001
  4. TRAMADOL HCL [Concomitant]
     Route: 048
  5. CLONAZEPAM [Concomitant]
     Route: 048
     Dates: start: 20051116
  6. LORAZEPAM [Concomitant]
     Route: 048

REACTIONS (4)
  - HAEMORRHAGE [None]
  - INTERNATIONAL NORMALISED RATIO INCREASED [None]
  - PAIN [None]
  - RETROPERITONEAL HAEMATOMA [None]
